FAERS Safety Report 24146882 (Version 6)
Quarter: 2024Q4

REPORT INFORMATION
  Report Type: Spontaneous
  Country: NL (occurrence: NL)
  Receive Date: 20240729
  Receipt Date: 20241121
  Transmission Date: 20250114
  Serious: Yes (Hospitalization)
  Sender: MERCK
  Company Number: NL-ROCHE-3484734

PATIENT
  Age: 69 Year
  Sex: Female
  Weight: 64.6 kg

DRUGS (18)
  1. PEMBROLIZUMAB [Suspect]
     Active Substance: PEMBROLIZUMAB
     Indication: Non-small cell lung cancer metastatic
     Dosage: ON 04/JAN/2024, SHE RECEIVED MOST RECENT DOSE (200 MG) OF PEMBROLIZUMAB PRIOR TO AE/SAE
     Route: 042
     Dates: start: 20231102, end: 20240104
  2. PEMBROLIZUMAB [Suspect]
     Active Substance: PEMBROLIZUMAB
     Dosage: 200 MILLIGRAM, Q3W
     Route: 042
     Dates: end: 20240119
  3. PEMBROLIZUMAB [Suspect]
     Active Substance: PEMBROLIZUMAB
     Dosage: 200 MILLIGRAM, Q3W
     Route: 042
     Dates: start: 20240210
  4. DIVARASIB [Suspect]
     Active Substance: DIVARASIB
     Indication: Non-small cell lung cancer metastatic
     Dosage: START DATE OF MOST RECENT DOSE OF STUDY DRUG PRIOR TO AE 18/JAN/2024  ON 29/DEC/2023, SHE RECEIVED M
     Route: 048
     Dates: start: 20231102, end: 20231229
  5. DIVARASIB [Suspect]
     Active Substance: DIVARASIB
     Dosage: 100 UNK
     Route: 048
     Dates: start: 20240118
  6. DIVARASIB [Suspect]
     Active Substance: DIVARASIB
     Dosage: UNK
     Route: 048
     Dates: start: 20240210
  7. POLYETHYLENE GLYCOLS [Concomitant]
     Active Substance: POLYETHYLENE GLYCOLS
     Indication: Constipation prophylaxis
     Dosage: PHARMACEUTICAL FORM: OTHER
     Route: 048
     Dates: start: 20230929
  8. LEVOTHYROXINE SODIUM [Concomitant]
     Active Substance: LEVOTHYROXINE SODIUM
     Indication: Hypothyroidism
     Dosage: 62 MICROGRAM, QD
     Route: 048
     Dates: end: 20231129
  9. LEVOTHYROXINE SODIUM [Concomitant]
     Active Substance: LEVOTHYROXINE SODIUM
     Dosage: 50 MICROGRAM, QD
     Route: 048
     Dates: start: 20231229, end: 20240214
  10. VITAMIN B COMPLEX [Concomitant]
     Active Substance: CYANOCOBALAMIN\DEXPANTHENOL\NIACINAMIDE\PYRIDOXINE HYDROCHLORIDE\RIBOFLAVIN 5^-PHOSPHATE SODIUM\THIA
     Indication: Vitamin supplementation
     Dosage: 2 CAPSULE
     Route: 048
  11. VITAMIN D3 [Concomitant]
     Active Substance: CHOLECALCIFEROL
     Indication: Vitamin supplementation
     Dosage: 25 MICROGRAM, QD
     Route: 048
     Dates: start: 20230929, end: 20231123
  12. ACETAMINOPHEN [Concomitant]
     Active Substance: ACETAMINOPHEN
     Indication: Pain prophylaxis
     Dosage: 1000 MILLIGRAM, TID
     Route: 048
  13. ONDANSETRON [Concomitant]
     Active Substance: ONDANSETRON
     Indication: Nausea
     Dosage: 8 MILLIGRAM, PRN
     Route: 048
     Dates: start: 20240118
  14. NYSTATIN [Concomitant]
     Active Substance: NYSTATIN
     Indication: Stomatitis
     Dosage: 500000 INTERNATIONAL UNIT. UNINT INTERVAL: 0.25 DAY
     Route: 048
     Dates: start: 20240328, end: 20240403
  15. AMOXICILLIN SODIUM [Concomitant]
     Active Substance: AMOXICILLIN SODIUM
     Indication: Infection prophylaxis
     Dosage: 500 MILLIGRAM, TID
     Route: 048
     Dates: start: 20231107, end: 20231112
  16. CLAVULANIC ACID [Concomitant]
     Active Substance: CLAVULANIC ACID
     Indication: Infection prophylaxis
     Dosage: UNK
     Route: 048
  17. LOPERAMIDE [Concomitant]
     Active Substance: LOPERAMIDE
     Indication: Diarrhoea
     Dosage: TOTAL DAILY DOSE: 10 MG
     Route: 048
     Dates: start: 20231218
  18. BUDESONIDE [Concomitant]
     Active Substance: BUDESONIDE
     Indication: Diarrhoea
     Dosage: 9 MILLIGRAM, QD
     Route: 048
     Dates: start: 20240210, end: 20240411

REACTIONS (2)
  - Paraesthesia [Recovered/Resolved]
  - Diarrhoea [Not Recovered/Not Resolved]

NARRATIVE: CASE EVENT DATE: 20231230
